FAERS Safety Report 21968804 (Version 1)
Quarter: 2023Q1

REPORT INFORMATION
  Report Type: Spontaneous
  Country: US (occurrence: US)
  Receive Date: 20230208
  Receipt Date: 20230208
  Transmission Date: 20230417
  Serious: Yes (Other)
  Sender: FDA-Public Use
  Company Number: US-MLMSERVICE-20230127-4066756-1

PATIENT
  Age: 56 Year
  Sex: Male

DRUGS (1)
  1. OMEPRAZOLE [Suspect]
     Active Substance: OMEPRAZOLE
     Indication: Helicobacter infection
     Dosage: UNK
     Route: 048

REACTIONS (1)
  - Anaphylactic reaction [Recovering/Resolving]
